FAERS Safety Report 16876607 (Version 2)
Quarter: 2019Q4

REPORT INFORMATION
  Report Type: Spontaneous
  Country: SE (occurrence: SE)
  Receive Date: 20191002
  Receipt Date: 20191022
  Transmission Date: 20200122
  Serious: Yes (Hospitalization, Disabling, Other)
  Sender: FDA-Public Use
  Company Number: SE-009507513-1909SWE007848

PATIENT
  Age: 63 Year
  Sex: Female

DRUGS (2)
  1. KEYTRUDA [Suspect]
     Active Substance: PEMBROLIZUMAB
     Indication: ADENOCARCINOMA
  2. KEYTRUDA [Suspect]
     Active Substance: PEMBROLIZUMAB
     Indication: NON-SMALL CELL LUNG CANCER
     Dosage: STRENGTH ^200 MG^
     Dates: start: 20181025, end: 20181115

REACTIONS (9)
  - Hyperthyroidism [Recovered/Resolved]
  - Immune-mediated adverse reaction [Recovering/Resolving]
  - Headache [Recovering/Resolving]
  - Paraneoplastic syndrome [Recovering/Resolving]
  - Muscle disorder [Recovering/Resolving]
  - Discomfort [Recovering/Resolving]
  - Myasthenic syndrome [Recovering/Resolving]
  - Myasthenia gravis [Recovered/Resolved]
  - Myasthenic syndrome [Recovering/Resolving]

NARRATIVE: CASE EVENT DATE: 2018
